FAERS Safety Report 20556830 (Version 2)
Quarter: 2022Q2

REPORT INFORMATION
  Report Type: Spontaneous
  Country: DE (occurrence: DE)
  Receive Date: 20220307
  Receipt Date: 20220408
  Transmission Date: 20220720
  Serious: Yes (Hospitalization)
  Sender: FDA-Public Use
  Company Number: DE-HETERO-HET2022DE00533

PATIENT
  Age: 83 Year
  Sex: Male

DRUGS (15)
  1. FINASTERIDE [Suspect]
     Active Substance: FINASTERIDE
     Indication: Product used for unknown indication
     Dosage: 1-0-0, QD
     Route: 065
     Dates: end: 20220205
  2. TAMSULOSIN [Suspect]
     Active Substance: TAMSULOSIN
     Indication: Product used for unknown indication
     Dosage: 0-0-1, QD
     Route: 065
     Dates: end: 20220205
  3. SIMVASTATIN [Suspect]
     Active Substance: SIMVASTATIN
     Indication: Product used for unknown indication
     Dosage: 0-0-1, QD
     Route: 065
     Dates: end: 20220205
  4. ALLOPURINOL [Suspect]
     Active Substance: ALLOPURINOL
     Indication: Product used for unknown indication
     Dosage: 0-0-1, QD
     Route: 065
     Dates: end: 20220205
  5. BUSERELIN [Suspect]
     Active Substance: BUSERELIN
     Indication: Product used for unknown indication
     Dosage: 9.5 MG
     Route: 058
     Dates: start: 20220128
  6. BICALUTAMIDE [Suspect]
     Active Substance: BICALUTAMIDE
     Indication: Product used for unknown indication
     Dosage: 20 DAYS UNTIL 2022-02-01
     Route: 065
     Dates: start: 20220113, end: 20220201
  7. FELODIPINE [Concomitant]
     Active Substance: FELODIPINE
     Indication: Product used for unknown indication
     Dosage: 0-0-0.5
     Route: 065
  8. CYCLOSPORINE [Concomitant]
     Active Substance: CYCLOSPORINE
     Indication: Product used for unknown indication
     Dosage: 1-0-1, BID
     Route: 065
  9. NOVALGIN                           /00169801/ [Concomitant]
     Indication: Product used for unknown indication
     Dosage: 1-1-1, TID
     Route: 065
  10. BISOPROLOL [Concomitant]
     Active Substance: BISOPROLOL
     Indication: Product used for unknown indication
     Dosage: 1-0-1, BID
     Route: 065
  11. MARCUMAR [Concomitant]
     Active Substance: PHENPROCOUMON
     Indication: Product used for unknown indication
     Dosage: 1-0-0, QD
     Route: 065
  12. CHOLECALCIFEROL [Concomitant]
     Active Substance: CHOLECALCIFEROL
     Indication: Product used for unknown indication
     Dosage: 20000 IU INTERNATIONAL UNIT(S), ONCE A WEEK
     Route: 065
  13. PREDNISOLON                        /00016201/ [Concomitant]
     Indication: Product used for unknown indication
     Dosage: 1-0-0, QD
     Route: 065
  14. TORSEMIDE [Concomitant]
     Active Substance: TORSEMIDE
     Indication: Product used for unknown indication
     Dosage: 1-1-0, BID
     Route: 065
  15. EPO                                /00909301/ [Concomitant]
     Indication: Product used for unknown indication
     Dosage: 3000 IU INTERNATIONAL UNIT(S), ONCE A WEEK
     Route: 065

REACTIONS (8)
  - Muscular weakness [Not Recovered/Not Resolved]
  - Product prescribing error [Unknown]
  - Pyrexia [Recovered/Resolved]
  - Blood lactate dehydrogenase increased [Unknown]
  - Aspartate aminotransferase increased [Unknown]
  - Blood creatine phosphokinase increased [Unknown]
  - Gamma-glutamyltransferase increased [Unknown]
  - Alanine aminotransferase increased [Unknown]

NARRATIVE: CASE EVENT DATE: 20220128
